FAERS Safety Report 6933998-8 (Version None)
Quarter: 2010Q3

REPORT INFORMATION
  Report Type: 
  Country: None (occurrence: None)
  Receive Date: 20100820
  Receipt Date: 20100811
  Transmission Date: 20110219
  Serious: Yes (Hospitalization)
  Sender: FDA-Public Use
  Company Number: US-JNJFOC-20100804239

PATIENT
  Sex: Male
  Weight: 99.79 kg

DRUGS (4)
  1. FENTANYL CITRATE [Suspect]
     Indication: NEUROPATHY PERIPHERAL
     Route: 062
  2. FENTANYL CITRATE [Suspect]
     Dosage: NDC: 0781-7113-55
     Route: 062
  3. FENTANYL CITRATE [Suspect]
     Dosage: NDC: 00781-7242-55
     Route: 062
  4. FENTANYL CITRATE [Suspect]
     Indication: NEUROPATHY PERIPHERAL
     Route: 062

REACTIONS (2)
  - CARDIAC DISORDER [None]
  - DRUG INEFFECTIVE [None]
